FAERS Safety Report 25616576 (Version 2)
Quarter: 2025Q3

REPORT INFORMATION
  Report Type: Report from Study
  Country: CO (occurrence: CO)
  Receive Date: 20250729
  Receipt Date: 20250923
  Transmission Date: 20251021
  Serious: Yes (Other)
  Sender: TAKEDA
  Company Number: CO-TAKEDA-2025TUS066574

PATIENT
  Age: 18 Year
  Sex: Male
  Weight: 63 kg

DRUGS (3)
  1. RURIOCTOCOG ALFA PEGOL [Suspect]
     Active Substance: RURIOCTOCOG ALFA PEGOL
     Indication: Factor VIII deficiency
     Dosage: 3000 INTERNATIONAL UNIT, QD
  2. RURIOCTOCOG ALFA PEGOL [Suspect]
     Active Substance: RURIOCTOCOG ALFA PEGOL
     Indication: Prophylaxis
     Dosage: 3000 INTERNATIONAL UNIT, Q72H
     Dates: start: 20250720, end: 20250725
  3. RURIOCTOCOG ALFA PEGOL [Suspect]
     Active Substance: RURIOCTOCOG ALFA PEGOL

REACTIONS (14)
  - Wound haemorrhage [Recovered/Resolved]
  - Haematoma [Recovered/Resolved]
  - Haemarthrosis [Recovered/Resolved]
  - Drug ineffective [Unknown]
  - Fall [Unknown]
  - Joint injury [Unknown]
  - Pain [Unknown]
  - Arthralgia [Unknown]
  - Musculoskeletal pain [Unknown]
  - Oedema [Unknown]
  - Pain in extremity [Unknown]
  - Localised oedema [Unknown]
  - Erythema [Unknown]
  - Musculoskeletal stiffness [Unknown]

NARRATIVE: CASE EVENT DATE: 20250720
